FAERS Safety Report 7166493-4 (Version None)
Quarter: 2010Q4

REPORT INFORMATION
  Report Type: 
  Country: None (occurrence: None)
  Receive Date: 20101216
  Receipt Date: 20101214
  Transmission Date: 20110411
  Serious: Yes (Other)
  Sender: FDA-Public Use
  Company Number: ES-BRISTOL-MYERS SQUIBB COMPANY-15442312

PATIENT
  Sex: Male

DRUGS (1)
  1. ABILIFY [Suspect]
     Dates: start: 20101001

REACTIONS (1)
  - ACUTE RESPIRATORY FAILURE [None]
